FAERS Safety Report 5913017-2 (Version None)
Quarter: 2008Q4

REPORT INFORMATION
  Report Type: 
  Country: None (occurrence: None)
  Receive Date: 20081008
  Receipt Date: 20080926
  Transmission Date: 20090506
  Serious: Yes (Congenital Anomaly, Other)
  Sender: FDA-Public Use
  Company Number: FR-PFIZER INC-2008081933

PATIENT
  Sex: Male
  Weight: 2.3 kg

DRUGS (2)
  1. XANAX [Suspect]
     Route: 064
     Dates: start: 20051206
  2. CITALOPRAM HYDROBROMIDE [Suspect]
     Route: 064
     Dates: start: 20051206

REACTIONS (2)
  - DRUG EXPOSURE DURING PREGNANCY [None]
  - FALLOT'S TETRALOGY [None]
